FAERS Safety Report 13477570 (Version 8)
Quarter: 2017Q3

REPORT INFORMATION
  Report Type: Report from Study
  Country: US (occurrence: US)
  Receive Date: 20170424
  Receipt Date: 20170816
  Transmission Date: 20171127
  Serious: Yes (Death, Life-Threatening, Hospitalization, Other)
  Sender: FDA-Public Use
  Company Number: US-GILEAD-2017-0268390

PATIENT
  Age: 46 Year
  Sex: Female
  Weight: 101.3 kg

DRUGS (3)
  1. AMBRISENTAN [Suspect]
     Active Substance: AMBRISENTAN
     Indication: PULMONARY ARTERIAL HYPERTENSION
     Dosage: 5 MG, QD
     Route: 065
     Dates: start: 20120124
  2. TYVASO [Concomitant]
     Active Substance: TREPROSTINIL
  3. REVATIO [Concomitant]
     Active Substance: SILDENAFIL CITRATE

REACTIONS (13)
  - Respiratory failure [Unknown]
  - Neoplasm malignant [Fatal]
  - Unresponsive to stimuli [Not Recovered/Not Resolved]
  - Encephalopathy [Unknown]
  - Pulmonary embolism [Unknown]
  - Sepsis [Unknown]
  - Upper gastrointestinal haemorrhage [Unknown]
  - Malaise [Fatal]
  - Headache [Not Recovered/Not Resolved]
  - Malignant melanoma [Fatal]
  - Critical illness [Not Recovered/Not Resolved]
  - Mechanical ventilation [Not Recovered/Not Resolved]
  - Neck pain [Not Recovered/Not Resolved]

NARRATIVE: CASE EVENT DATE: 20170507
